FAERS Safety Report 15293548 (Version 1)
Quarter: 2018Q3

REPORT INFORMATION
  Report Type: Report from Study
  Country: US (occurrence: US)
  Receive Date: 20180820
  Receipt Date: 20180820
  Transmission Date: 20181010
  Serious: Yes (Other)
  Sender: FDA-Public Use
  Company Number: US-BRISTOL-MYERS SQUIBB COMPANY-BMS-2018-077115

PATIENT
  Age: 58 Year
  Sex: Female

DRUGS (3)
  1. APIXABAN [Suspect]
     Active Substance: APIXABAN
     Indication: EMBOLISM VENOUS
     Dosage: UNK
     Route: 065
  2. HUMIRA [Interacting]
     Active Substance: ADALIMUMAB
     Indication: RHEUMATOID ARTHRITIS
     Dosage: 40 MG, Q2WK
     Route: 058
     Dates: start: 2012, end: 201702
  3. HUMIRA [Interacting]
     Active Substance: ADALIMUMAB
     Indication: PRODUCT USED FOR UNKNOWN INDICATION
     Dosage: 40 MG, Q2WK
     Route: 058
     Dates: start: 20171004

REACTIONS (14)
  - Paraesthesia [Unknown]
  - Autoimmune disorder [Unknown]
  - Pain [Recovering/Resolving]
  - Drug interaction [Unknown]
  - Joint stiffness [Unknown]
  - Injection site pain [Recovering/Resolving]
  - Pemphigoid [Not Recovered/Not Resolved]
  - Joint swelling [Unknown]
  - Burning sensation [Unknown]
  - Pain in extremity [Unknown]
  - Muscular weakness [Unknown]
  - Rheumatoid arthritis [Not Recovered/Not Resolved]
  - Fatigue [Unknown]
  - Musculoskeletal stiffness [Unknown]

NARRATIVE: CASE EVENT DATE: 2017
